FAERS Safety Report 5670958-1 (Version None)
Quarter: 2008Q1

REPORT INFORMATION
  Report Type: 
  Country: None (occurrence: None)
  Receive Date: 20080318
  Receipt Date: 20080310
  Transmission Date: 20080703
  Serious: Yes (Disabling)
  Sender: FDA-Public Use
  Company Number: US-GILEAD-2008-0015645

PATIENT
  Sex: Female
  Weight: 140.74 kg

DRUGS (8)
  1. LETAIRIS [Suspect]
     Indication: PULMONARY HYPERTENSION
     Route: 048
     Dates: start: 20070901, end: 20071001
  2. GLYBURIDE [Concomitant]
  3. LASIX [Concomitant]
  4. TRAMADOL HCL [Concomitant]
  5. AMITRIPTYLINE HCL [Concomitant]
  6. PRAVACHOL [Concomitant]
  7. BYETTA [Concomitant]
  8. HUMALOG [Concomitant]

REACTIONS (2)
  - OEDEMA [None]
  - RENAL IMPAIRMENT [None]
